FAERS Safety Report 12638541 (Version 1)
Quarter: 2016Q3

REPORT INFORMATION
  Report Type: Spontaneous
  Country: US (occurrence: US)
  Receive Date: 20160809
  Receipt Date: 20160809
  Transmission Date: 20161109
  Serious: Yes (Death, Other)
  Sender: FDA-Public Use
  Company Number: US-BRISTOL-MYERS SQUIBB COMPANY-BMS-2016-064517

PATIENT
  Sex: Male

DRUGS (2)
  1. OPDIVO [Suspect]
     Active Substance: NIVOLUMAB
     Indication: SKIN CANCER
     Dosage: 130 MG, Q3WK
     Route: 042
     Dates: start: 20160622, end: 20160622
  2. YERVOY [Suspect]
     Active Substance: IPILIMUMAB
     Indication: SKIN CANCER
     Dosage: 380 MG, UNK
     Route: 042
     Dates: start: 20160622, end: 20160622

REACTIONS (1)
  - Death [Fatal]
